FAERS Safety Report 9913126 (Version 1)
Quarter: 2014Q1

REPORT INFORMATION
  Report Type: Spontaneous
  Country: DE (occurrence: None)
  Receive Date: 20140214
  Receipt Date: 20140214
  Transmission Date: 20141002
  Serious: Yes (Other)
  Sender: FDA-Public Use
  Company Number: FK201400428

PATIENT
  Age: 21 Year
  Sex: Female

DRUGS (1)
  1. CEFUROXIM FRESENIUS [Suspect]
     Indication: URINARY TRACT INFECTION
     Dosage: 1.5 GM, 1 IN 1 D, INTRAVENOUS (NOT OTHERWISE
     Route: 042
     Dates: start: 20140129, end: 20140129

REACTIONS (5)
  - Dizziness [None]
  - Tachycardia [None]
  - Fall [None]
  - Chest discomfort [None]
  - Exposure during pregnancy [None]
